FAERS Safety Report 5254832-0 (Version None)
Quarter: 2007Q1

REPORT INFORMATION
  Report Type: 
  Country: None (occurrence: None)
  Receive Date: 20070305
  Receipt Date: 20070219
  Transmission Date: 20070707
  Serious: Yes (Death, Other)
  Sender: FDA-Public Use
  Company Number: JP-ELI_LILLY_AND_COMPANY-US_020483757

PATIENT
  Age: 32 Year
  Sex: Male
  Weight: 82 kg

DRUGS (5)
  1. ZYPREXA [Suspect]
     Indication: SCHIZOPHRENIA
     Dosage: 5 MG, DAILY (1/D)
     Route: 048
     Dates: start: 20010811, end: 20020105
  2. RISPERDAL [Concomitant]
     Indication: SCHIZOPHRENIA
     Dosage: UNK, UNKNOWN
     Dates: start: 19980331, end: 20020105
  3. ROHYPNOL [Concomitant]
     Indication: INSOMNIA
     Dosage: UNK, UNKNOWN
     Route: 048
     Dates: start: 19980331, end: 20020105
  4. PURSENNID [Concomitant]
     Indication: CONSTIPATION
     Dosage: UNK, UNKNOWN
     Dates: end: 20020105
  5. PYRAMISTIN [Concomitant]
     Indication: PARKINSONISM
     Dosage: UNK, UNKNOWN
     Dates: start: 19980331, end: 20020105

REACTIONS (4)
  - DIABETIC COMA [None]
  - DIABETIC KETOACIDOSIS [None]
  - FALL [None]
  - HYPOKINESIA [None]
